FAERS Safety Report 6335372-4 (Version None)
Quarter: 2009Q3

REPORT INFORMATION
  Report Type: 
  Country: None (occurrence: None)
  Receive Date: 20090827
  Receipt Date: 20090820
  Transmission Date: 20100115
  Serious: Yes (Other)
  Sender: FDA-Public Use
  Company Number: 2009EU003248

PATIENT
  Age: 76 Year
  Sex: Female
  Weight: 95 kg

DRUGS (8)
  1. VESICARE [Suspect]
     Indication: CYSTITIS NONINFECTIVE
     Dosage: 10 MG, UID/QD, ORAL ; 5 MG, UID/QD
     Route: 048
     Dates: end: 20090628
  2. VESICARE [Suspect]
     Indication: CYSTITIS NONINFECTIVE
     Dosage: 10 MG, UID/QD, ORAL ; 5 MG, UID/QD
     Route: 048
     Dates: start: 20090629
  3. AMLODIPINE [Concomitant]
  4. ATENOLOL [Concomitant]
  5. PRESABET (NITRENDIPINE) [Concomitant]
  6. SELECTIN (PRAVASTATIN SODIUM) [Concomitant]
  7. VENORUTON (RUTOSIDE) [Concomitant]
  8. FLIXONASE (FLUTICASONE) [Concomitant]

REACTIONS (6)
  - DRY MOUTH [None]
  - DRY THROAT [None]
  - EATING DISORDER [None]
  - GLOSSODYNIA [None]
  - ORAL MUCOSAL EXFOLIATION [None]
  - STOMATITIS [None]
